FAERS Safety Report 6194698-8 (Version None)
Quarter: 2009Q2

REPORT INFORMATION
  Report Type: 
  Country: None (occurrence: None)
  Receive Date: 20090519
  Receipt Date: 20090512
  Transmission Date: 20091009
  Serious: Yes (Hospitalization, Other)
  Sender: FDA-Public Use
  Company Number: DE-ASTRAZENECA-2009PK01258

PATIENT
  Age: 58 Year
  Sex: Male
  Weight: 142 kg

DRUGS (1)
  1. PROPOFOL [Suspect]
     Indication: ANAESTHESIA
     Route: 042
     Dates: start: 20081203, end: 20081217

REACTIONS (2)
  - COMA [None]
  - RHABDOMYOLYSIS [None]
